FAERS Safety Report 14078325 (Version 2)
Quarter: 2017Q4

REPORT INFORMATION
  Report Type: Spontaneous
  Country: US (occurrence: US)
  Receive Date: 20171012
  Receipt Date: 20171124
  Transmission Date: 20180321
  Serious: No
  Sender: FDA-Public Use
  Company Number: US-PFIZER INC-2017415180

PATIENT
  Age: 38 Year
  Sex: Male

DRUGS (1)
  1. VIAGRA [Suspect]
     Active Substance: SILDENAFIL CITRATE
     Dosage: UNK, AS NEEDED (ONE-HALF TO ONE 100 MG TABLET 20 MINUTES PRIOR TO NEED)
     Route: 048

REACTIONS (3)
  - Product use issue [Unknown]
  - Musculoskeletal disorder [Unknown]
  - Impaired driving ability [Unknown]
